FAERS Safety Report 14579536 (Version 1)
Quarter: 2018Q1

REPORT INFORMATION
  Report Type: Spontaneous
  Country: US (occurrence: US)
  Receive Date: 20180227
  Receipt Date: 20180227
  Transmission Date: 20180509
  Serious: No
  Sender: FDA-Public Use
  Company Number: None

PATIENT
  Age: 76 Year
  Sex: Female
  Weight: 67.13 kg

DRUGS (4)
  1. VITAMIN D [Concomitant]
     Active Substance: CHOLECALCIFEROL
  2. MEGA REDS (KRILL OIL) [Concomitant]
  3. DORZOLAMIDE [Suspect]
     Active Substance: DORZOLAMIDE
     Dates: start: 20171212, end: 20180210
  4. LATANOPROST. [Suspect]
     Active Substance: LATANOPROST
     Indication: GLAUCOMA
     Dates: start: 20171208, end: 20180202

REACTIONS (5)
  - Pruritus [None]
  - Eye pruritus [None]
  - Palpitations [None]
  - Asthenia [None]
  - Fatigue [None]
